FAERS Safety Report 17845523 (Version 1)
Quarter: 2020Q2

REPORT INFORMATION
  Report Type: Spontaneous
  Country: IE (occurrence: IE)
  Receive Date: 20200601
  Receipt Date: 20200601
  Transmission Date: 20200714
  Serious: Yes (Hospitalization, Other)
  Sender: FDA-Public Use
  Company Number: IE-LUPIN PHARMACEUTICALS INC.-2020-02471

PATIENT
  Age: 62 Year
  Sex: Male

DRUGS (2)
  1. TESTOSTERONE. [Suspect]
     Active Substance: TESTOSTERONE
     Indication: MUSCLE BUILDING THERAPY
  2. TESTOSTERONE. [Suspect]
     Active Substance: TESTOSTERONE
     Indication: LIBIDO DISORDER
     Dosage: UNK
     Route: 065

REACTIONS (3)
  - Hyperglycaemic hyperosmolar nonketotic syndrome [Unknown]
  - Drug abuse [Unknown]
  - Contraindicated product administered [Unknown]
